FAERS Safety Report 8819443 (Version 1)
Quarter: 2012Q4

REPORT INFORMATION
  Report Type: 
  Country: ES (occurrence: ES)
  Receive Date: 20121001
  Receipt Date: 20121001
  Transmission Date: 20130627
  Serious: Yes (Other)
  Sender: FDA-Public Use
  Company Number: ES-ABBOTT-12P-144-0985776-00

PATIENT
  Age: 52 Year
  Sex: Male

DRUGS (1)
  1. SECALIP [Suspect]
     Indication: HYPERTRIGLYCERIDAEMIA
     Dates: start: 20120409, end: 20120409

REACTIONS (2)
  - Respiratory distress [Unknown]
  - Oropharyngeal pain [Unknown]
